FAERS Safety Report 10053416 (Version 1)
Quarter: 2014Q2

REPORT INFORMATION
  Report Type: Spontaneous
  Country: DE (occurrence: DE)
  Receive Date: 20140402
  Receipt Date: 20140402
  Transmission Date: 20141212
  Serious: Yes (Other)
  Sender: FDA-Public Use
  Company Number: DE-TEVA-472724GER

PATIENT
  Sex: Female

DRUGS (1)
  1. INDOMETACIN [Suspect]
     Indication: BURSITIS

REACTIONS (2)
  - Sudden hearing loss [Recovered/Resolved]
  - Tinnitus [Recovering/Resolving]
